FAERS Safety Report 19509733 (Version 3)
Quarter: 2021Q3

REPORT INFORMATION
  Report Type: Spontaneous
  Country: CN (occurrence: CN)
  Receive Date: 20210708
  Receipt Date: 20210721
  Transmission Date: 20211014
  Serious: Yes (Hospitalization, Other)
  Sender: FDA-Public Use
  Company Number: CN-ASTRAZENECA-2021A539712

PATIENT
  Age: 63 Year
  Sex: Female

DRUGS (2)
  1. TAGRISSO [Suspect]
     Active Substance: OSIMERTINIB
     Indication: NON-SMALL CELL LUNG CANCER
     Dosage: ONE TABLET EACH TIME
     Route: 048
  2. TAGRISSO [Suspect]
     Active Substance: OSIMERTINIB
     Indication: NON-SMALL CELL LUNG CANCER
     Dosage: NOW THE PATIENT TOOK THE DRUG EVERY OTHER DAY
     Route: 048
     Dates: start: 20210616

REACTIONS (6)
  - Chest pain [Unknown]
  - Dyspnoea [Unknown]
  - Tachypnoea [Unknown]
  - EGFR gene mutation [Unknown]
  - Hydrothorax [Unknown]
  - Myocardial necrosis marker increased [Not Recovered/Not Resolved]
